FAERS Safety Report 16383964 (Version 1)
Quarter: 2019Q2

REPORT INFORMATION
  Report Type: Spontaneous
  Country: US (occurrence: US)
  Receive Date: 20190603
  Receipt Date: 20190603
  Transmission Date: 20190711
  Serious: Yes (Other)
  Sender: FDA-Public Use
  Company Number: US-ROCHE-2327991

PATIENT
  Age: 13 Year
  Sex: Male

DRUGS (2)
  1. TESTOSTERONE ENANTHATE. [Concomitant]
     Active Substance: TESTOSTERONE ENANTHATE
     Route: 030
  2. SOMATROPIN. [Suspect]
     Active Substance: SOMATROPIN
     Indication: GROWTH HORMONE DEFICIENCY
     Dosage: 0.3 MG /KG/WEEK DIVIDED IN TO SEVEN DAILY DOSES
     Route: 058

REACTIONS (1)
  - Neoplasm progression [Recovering/Resolving]
